FAERS Safety Report 4317578-9 (Version None)
Quarter: 2004Q1

REPORT INFORMATION
  Report Type: 
  Country: None (occurrence: None)
  Receive Date: 20040312
  Receipt Date: 20040303
  Transmission Date: 20041129
  Serious: Yes (Other)
  Sender: FDA-Public Use
  Company Number: 2004014921

PATIENT
  Age: 90 Year
  Sex: Female
  Weight: 63.6 kg

DRUGS (5)
  1. AMLODIPINE [Suspect]
     Indication: HYPERTENSION
     Dosage: ORAL
     Route: 048
     Dates: start: 20030708, end: 20040218
  2. ACETAMINOPHEN [Concomitant]
  3. IBUPROFEN [Concomitant]
  4. BENDROFLUMETHIAZIDE (BENDROFLUMETHIAZIDE) [Concomitant]
  5. TEMAZEPAM [Concomitant]

REACTIONS (2)
  - CONFUSIONAL STATE [None]
  - HALLUCINATION, VISUAL [None]
